FAERS Safety Report 6925994-1 (Version None)
Quarter: 2010Q3

REPORT INFORMATION
  Report Type: 
  Country: None (occurrence: None)
  Receive Date: 20100816
  Receipt Date: 20100806
  Transmission Date: 20110219
  Serious: Yes (Other)
  Sender: FDA-Public Use
  Company Number: US-PFIZER INC-2010075632

PATIENT
  Sex: Female
  Weight: 48 kg

DRUGS (4)
  1. CHANTIX [Suspect]
     Indication: SMOKING CESSATION THERAPY
     Dosage: 0.5 MG, 1X/DAY
     Route: 048
     Dates: start: 20070101
  2. CHANTIX [Interacting]
     Dosage: 1 MG, 2X/DAY
     Route: 048
     Dates: start: 20100101, end: 20100601
  3. CHANTIX [Interacting]
     Dosage: 0.5 MG, 1X/DAY
     Dates: start: 20100519, end: 20100601
  4. TOPIRAMATE [Interacting]
     Indication: CONVULSION
     Dosage: 200 MG, 2X/DAY

REACTIONS (15)
  - AMAUROSIS FUGAX [None]
  - ANXIETY DISORDER [None]
  - AORTIC STENOSIS [None]
  - BRONCHITIS BACTERIAL [None]
  - BRONCHITIS CHRONIC [None]
  - CHEST PAIN [None]
  - COLONIC STENOSIS [None]
  - CONVULSION [None]
  - DEPRESSION [None]
  - DRUG EFFECT DECREASED [None]
  - FIBROMYALGIA [None]
  - OSTEOPENIA [None]
  - PALPITATIONS [None]
  - RESTLESS LEGS SYNDROME [None]
  - SUICIDAL IDEATION [None]
